FAERS Safety Report 8260056-5 (Version None)
Quarter: 2012Q2

REPORT INFORMATION
  Report Type: 
  Country: None (occurrence: None)
  Receive Date: 20120404
  Receipt Date: 20120323
  Transmission Date: 20120825
  Serious: Yes (Hospitalization)
  Sender: FDA-Public Use
  Company Number: GB-PFIZER INC-2012080447

PATIENT
  Sex: Female

DRUGS (2)
  1. NICORETTE [Suspect]
     Dosage: UNK
     Route: 055
     Dates: start: 20120317, end: 20120301
  2. NICORETTE [Suspect]
     Dosage: UNK
     Route: 055
     Dates: start: 20120301

REACTIONS (4)
  - ABDOMINAL PAIN UPPER [None]
  - VOMITING [None]
  - PAIN [None]
  - MALAISE [None]
